FAERS Safety Report 13744430 (Version 1)
Quarter: 2017Q3

REPORT INFORMATION
  Report Type: Report from Study
  Country: US (occurrence: US)
  Receive Date: 20170712
  Receipt Date: 20170712
  Transmission Date: 20171127
  Serious: Yes (Death, Other)
  Sender: FDA-Public Use
  Company Number: US-ROCHE-1959169

PATIENT

DRUGS (3)
  1. CAPECITABINE. [Suspect]
     Active Substance: CAPECITABINE
     Indication: ANAL SQUAMOUS CELL CARCINOMA
     Route: 065
  2. 5-FLUOROURACIL [Suspect]
     Active Substance: FLUOROURACIL
     Indication: ANAL SQUAMOUS CELL CARCINOMA
     Dosage: DAYS 1TO 4 AND DAYS 29 TO 32.
     Route: 042
  3. MITOMYCIN C [Suspect]
     Active Substance: MITOMYCIN
     Indication: ANAL SQUAMOUS CELL CARCINOMA
     Dosage: DAYS 1 AND 29
     Route: 065

REACTIONS (14)
  - Anaemia [Unknown]
  - Rectal haemorrhage [Unknown]
  - Neutropenia [Unknown]
  - Thrombocytopenia [Unknown]
  - Gastrointestinal toxicity [Unknown]
  - Toxicity to various agents [Unknown]
  - Stress fracture [Unknown]
  - Renal failure [Fatal]
  - Nausea [Fatal]
  - Gastrointestinal angiectasia [Unknown]
  - Pneumonia aspiration [Fatal]
  - Skin toxicity [Unknown]
  - Vomiting [Fatal]
  - Diarrhoea [Unknown]
